FAERS Safety Report 6551310-3 (Version None)
Quarter: 2010Q1

REPORT INFORMATION
  Report Type: 
  Country: None (occurrence: None)
  Receive Date: 20100120
  Receipt Date: 20100111
  Transmission Date: 20100710
  Serious: Yes (Hospitalization)
  Sender: FDA-Public Use
  Company Number: WAES 0808USA02000

PATIENT
  Age: 86 Year
  Sex: Male

DRUGS (5)
  1. ZOCOR [Suspect]
     Indication: ACUTE CORONARY SYNDROME
     Dosage: 40 MG/DAILY PO
     Route: 048
     Dates: start: 20060920, end: 20091116
  2. TAB PLACEBO (UNSPECIFIED) [Suspect]
     Indication: ACUTE CORONARY SYNDROME
     Dosage: PO
     Route: 048
     Dates: start: 20060920, end: 20091116
  3. ASPIRIN [Concomitant]
  4. FELODIPINE [Concomitant]
  5. METOPROLOL SUCCINATE [Concomitant]

REACTIONS (4)
  - CHOLANGITIS [None]
  - CHOLELITHIASIS [None]
  - GASTROINTESTINAL HAEMORRHAGE [None]
  - HAEMOGLOBIN DECREASED [None]
